FAERS Safety Report 7905313-4 (Version None)
Quarter: 2011Q4

REPORT INFORMATION
  Report Type: 
  Country: None (occurrence: None)
  Receive Date: 20111109
  Receipt Date: 20111027
  Transmission Date: 20120403
  Serious: Yes (Other)
  Sender: FDA-Public Use
  Company Number: CA-AMGEN-CANSP2011055733

PATIENT
  Age: 45 Year
  Sex: Male

DRUGS (3)
  1. CELEBREX [Concomitant]
  2. IBUPROFEN [Concomitant]
     Dosage: UNK UNK, PRN
  3. ENBREL [Suspect]
     Indication: ANKYLOSING SPONDYLITIS
     Dosage: 50 MG, QWK
     Dates: start: 20110802

REACTIONS (2)
  - PARAESTHESIA [None]
  - PAIN IN EXTREMITY [None]
